FAERS Safety Report 6774601-X (Version None)
Quarter: 2010Q2

REPORT INFORMATION
  Report Type: 
  Country: None (occurrence: None)
  Receive Date: 20100615
  Receipt Date: 20100615
  Transmission Date: 20101027
  Serious: Yes (Other)
  Sender: FDA-Public Use
  Company Number: None

PATIENT
  Age: 24 Year
  Sex: Female

DRUGS (1)
  1. DEXAMETHASONE 1MG ROXANE LABORATORIES, INC. [Suspect]
     Indication: HELLP SYNDROME
     Dosage: 2 MG PO Q6H
     Route: 048
     Dates: start: 20100606

REACTIONS (1)
  - RASH [None]
